FAERS Safety Report 23500676 (Version 2)
Quarter: 2024Q1

REPORT INFORMATION
  Report Type: Spontaneous
  Country: DE (occurrence: DE)
  Receive Date: 20240208
  Receipt Date: 20240216
  Transmission Date: 20240410
  Serious: Yes (Other)
  Sender: FDA-Public Use
  Company Number: DE-GSKCCFEMEA-Case-01903044_AE-79811

PATIENT

DRUGS (2)
  1. FLUTICASONE PROPIONATE\SALMETEROL XINAFOATE [Suspect]
     Active Substance: FLUTICASONE PROPIONATE\SALMETEROL XINAFOATE
     Indication: Sinusitis
     Dosage: BID (50/100 ?G) (APPROX 4 DAYS
  2. FLUTICASONE FUROATE\VILANTEROL TRIFENATATE [Suspect]
     Active Substance: FLUTICASONE FUROATE\VILANTEROL TRIFENATATE
     Indication: Sinusitis
     Dosage: UNK

REACTIONS (10)
  - Pharyngeal stenosis [Unknown]
  - Bronchostenosis [Unknown]
  - Bronchial secretion retention [Unknown]
  - Dysphonia [Unknown]
  - Productive cough [Unknown]
  - Aphonia [Unknown]
  - Oropharyngeal discomfort [Unknown]
  - Pulmonary function test decreased [Unknown]
  - Product use in unapproved indication [Unknown]
  - Product dose omission issue [Unknown]
